FAERS Safety Report 10793725 (Version 5)
Quarter: 2015Q2

REPORT INFORMATION
  Report Type: Spontaneous
  Country: US (occurrence: US)
  Receive Date: 20150213
  Receipt Date: 20150619
  Transmission Date: 20150821
  Serious: Yes (Death, Other)
  Sender: FDA-Public Use
  Company Number: US-PFIZER INC-2015055763

PATIENT
  Age: 74 Year
  Sex: Male

DRUGS (3)
  1. SUTENT [Suspect]
     Active Substance: SUNITINIB MALATE
     Indication: METASTATIC RENAL CELL CARCINOMA
     Dosage: 50 MG, CYCLIC (28 DAYS ON, 14 DAYS OFF)
     Dates: start: 20150112, end: 20150401
  2. IBUPROFEN. [Concomitant]
     Active Substance: IBUPROFEN
     Dosage: UNK
  3. MORPHINE [Concomitant]
     Active Substance: MORPHINE
     Dosage: UNK

REACTIONS (13)
  - Pain in extremity [Not Recovered/Not Resolved]
  - Boredom [Unknown]
  - Fall [Unknown]
  - Metastatic renal cell carcinoma [Unknown]
  - Weight decreased [Unknown]
  - Dysgeusia [Unknown]
  - Gait disturbance [Unknown]
  - Death [Fatal]
  - Disease progression [Unknown]
  - Tooth fracture [Unknown]
  - Decreased appetite [Unknown]
  - Dry skin [Unknown]
  - Glossodynia [Unknown]

NARRATIVE: CASE EVENT DATE: 2015
